FAERS Safety Report 17070277 (Version 2)
Quarter: 2019Q4

REPORT INFORMATION
  Report Type: Spontaneous
  Country: US (occurrence: US)
  Receive Date: 20191125
  Receipt Date: 20191127
  Transmission Date: 20200122
  Serious: Yes (Hospitalization)
  Sender: FDA-Public Use
  Company Number: US-HORIZON-PRO-0252-2019

PATIENT
  Age: 21 Year
  Sex: Male

DRUGS (1)
  1. PROCYSBI [Suspect]
     Active Substance: CYSTEAMINE BITARTRATE
     Indication: AMINO ACID METABOLISM DISORDER
     Dosage: TID; 3 CAPS IN THE MORNING, 4 CAPS MID-DAY AND 3 CAPS IN THE EVENING
     Route: 048

REACTIONS (2)
  - Epistaxis [Recovering/Resolving]
  - Off label use [Unknown]
